FAERS Safety Report 8531348-7 (Version None)
Quarter: 2012Q3

REPORT INFORMATION
  Report Type: 
  Country: None (occurrence: None)
  Receive Date: 20120723
  Receipt Date: 20120710
  Transmission Date: 20120928
  Serious: Yes (Hospitalization)
  Sender: FDA-Public Use
  Company Number: US-ACTELION-A-NJ2012-68551

PATIENT

DRUGS (2)
  1. TYVASO [Suspect]
  2. TRACLEER [Suspect]
     Indication: PULMONARY ARTERIAL HYPERTENSION
     Dosage: UNK
     Route: 048

REACTIONS (5)
  - ASTHENIA [None]
  - VISUAL IMPAIRMENT [None]
  - DIZZINESS [None]
  - EPISTAXIS [None]
  - VERTIGO [None]
